FAERS Safety Report 12659636 (Version 1)
Quarter: 2016Q3

REPORT INFORMATION
  Report Type: Spontaneous
  Country: US (occurrence: US)
  Receive Date: 20160817
  Receipt Date: 20160817
  Transmission Date: 20161109
  Serious: No
  Sender: FDA-Public Use
  Company Number: US-009507513-1608USA004951

PATIENT
  Age: 53 Year
  Sex: Female

DRUGS (2)
  1. IBUPROFEN (+) ACETAMINOPHEN [Concomitant]
     Dosage: 18 UNK, UNK
     Route: 048
  2. INTRON A [Suspect]
     Active Substance: INTERFERON ALFA-2B
     Indication: MALIGNANT MELANOMA
     Dosage: 18MIU ON MONDAYS, WEDNESAYS AND FRIDAYS
     Route: 058
     Dates: start: 201508

REACTIONS (1)
  - Depression [Unknown]
